FAERS Safety Report 7520396-1 (Version None)
Quarter: 2011Q2

REPORT INFORMATION
  Report Type: 
  Country: None (occurrence: None)
  Receive Date: 20110602
  Receipt Date: 20110107
  Transmission Date: 20111010
  Serious: Yes (Hospitalization, Other)
  Sender: FDA-Public Use
  Company Number: US-BAYER-201031279NA

PATIENT
  Age: 29 Year
  Sex: Female
  Weight: 122.73 kg

DRUGS (5)
  1. IBUPROFEN [Concomitant]
     Dates: start: 20070717
  2. BEN-GAY [Concomitant]
  3. COUMADIN [Concomitant]
  4. YASMIN [Suspect]
     Indication: CONTRACEPTION
     Route: 048
     Dates: start: 20070101, end: 20070716
  5. NOS [Concomitant]
     Indication: CHEST PAIN
     Dates: start: 20070715

REACTIONS (7)
  - MUSCLE SPASMS [None]
  - CHEST PAIN [None]
  - GAIT DISTURBANCE [None]
  - PULMONARY INFARCTION [None]
  - DYSPNOEA [None]
  - PULMONARY EMBOLISM [None]
  - DEPRESSED MOOD [None]
